FAERS Safety Report 20261721 (Version 1)
Quarter: 2021Q4

REPORT INFORMATION
  Report Type: Spontaneous
  Country: GB (occurrence: GB)
  Receive Date: 20211231
  Receipt Date: 20211231
  Transmission Date: 20220303
  Serious: Yes (Life-Threatening, Hospitalization, Disabling, Congenital Anomaly, Other)
  Sender: FDA-Public Use
  Company Number: GB-MHRA-INP23AEEA2A-511E-4089-89B1-DA82DB408AF3

PATIENT
  Age: 78 Year
  Sex: Female

DRUGS (2)
  1. TADALAFIL [Suspect]
     Active Substance: TADALAFIL
     Indication: Product used for unknown indication
     Dosage: UNK
     Route: 048
  2. GABAPENTIN [Concomitant]
     Active Substance: GABAPENTIN
     Indication: Product used for unknown indication
     Dosage: UNK (THREE TIMES A DAY)
     Route: 065
     Dates: start: 20211216

REACTIONS (1)
  - Prophylaxis [Recovering/Resolving]

NARRATIVE: CASE EVENT DATE: 20211216
